FAERS Safety Report 24612801 (Version 22)
Quarter: 2025Q4

REPORT INFORMATION
  Report Type: Spontaneous
  Country: CA (occurrence: CA)
  Receive Date: 20241113
  Receipt Date: 20251124
  Transmission Date: 20260117
  Serious: Yes (Hospitalization, Other)
  Sender: PFIZER
  Company Number: CA-PFIZER INC-PV202400134480

PATIENT
  Age: 41 Year
  Sex: Female

DRUGS (45)
  1. TRAZIMERA [Suspect]
     Active Substance: TRASTUZUMAB-QYYP
     Indication: Triple negative breast cancer
     Dosage: 712 MG, EVERY 3 WEEKS
     Route: 042
     Dates: start: 20241108
  2. TRAZIMERA [Suspect]
     Active Substance: TRASTUZUMAB-QYYP
     Dosage: 712 MG, EVERY 3 WEEKS
     Route: 042
     Dates: start: 20241128
  3. TRAZIMERA [Suspect]
     Active Substance: TRASTUZUMAB-QYYP
     Dosage: 542.7 MG
     Route: 042
     Dates: start: 20241219
  4. TRAZIMERA [Suspect]
     Active Substance: TRASTUZUMAB-QYYP
     Dosage: 542.7 MG
     Route: 042
     Dates: start: 20241219
  5. TRAZIMERA [Suspect]
     Active Substance: TRASTUZUMAB-QYYP
     Dosage: 540 MG
     Route: 042
     Dates: start: 20250109
  6. TRAZIMERA [Suspect]
     Active Substance: TRASTUZUMAB-QYYP
     Dosage: 540 MG
     Route: 042
     Dates: start: 20250109
  7. TRAZIMERA [Suspect]
     Active Substance: TRASTUZUMAB-QYYP
     Dosage: 545.4 MG, EVERY 3 WEEKS
     Route: 042
     Dates: start: 20250130
  8. TRAZIMERA [Suspect]
     Active Substance: TRASTUZUMAB-QYYP
     Dosage: 540 MG, EVERY 3 WEEKS
     Route: 042
     Dates: start: 20250220
  9. TRAZIMERA [Suspect]
     Active Substance: TRASTUZUMAB-QYYP
     Dosage: 540 MG, EVERY 3 WEEKS
     Route: 042
     Dates: start: 20250220
  10. TRAZIMERA [Suspect]
     Active Substance: TRASTUZUMAB-QYYP
     Dosage: 553.8 MG, EVERY 3 WEEKS
     Route: 042
     Dates: start: 20250313
  11. TRAZIMERA [Suspect]
     Active Substance: TRASTUZUMAB-QYYP
     Dosage: 553.8 MG, EVERY 3 WEEKS
     Route: 042
     Dates: start: 20250313
  12. TRAZIMERA [Suspect]
     Active Substance: TRASTUZUMAB-QYYP
     Dosage: 548.16 MG, EVERY 3 WEEKS
     Route: 042
     Dates: start: 20250403
  13. TRAZIMERA [Suspect]
     Active Substance: TRASTUZUMAB-QYYP
     Dosage: 550.8 MG, EVERY 3 WEEKS
     Route: 042
     Dates: start: 20250424
  14. TRAZIMERA [Suspect]
     Active Substance: TRASTUZUMAB-QYYP
     Dosage: 550.8 MG, EVERY 3 WEEKS
     Route: 042
     Dates: start: 20250424
  15. TRAZIMERA [Suspect]
     Active Substance: TRASTUZUMAB-QYYP
     Dosage: 556.2 MG, EVERY 3 WEEKS
     Route: 042
     Dates: start: 20250522
  16. TRAZIMERA [Suspect]
     Active Substance: TRASTUZUMAB-QYYP
     Dosage: 556.2 MG, EVERY 3 WEEKS
     Route: 042
     Dates: start: 20250522
  17. TRAZIMERA [Suspect]
     Active Substance: TRASTUZUMAB-QYYP
     Dosage: 545.2 MG, EVERY 3 WEEKS
     Route: 042
     Dates: start: 20250612
  18. TRAZIMERA [Suspect]
     Active Substance: TRASTUZUMAB-QYYP
     Dosage: 545.2 MG, EVERY 3 WEEKS
     Route: 042
     Dates: start: 20250612
  19. TRAZIMERA [Suspect]
     Active Substance: TRASTUZUMAB-QYYP
     Dosage: 542.7 MG, EVERY 3 WEEKS
     Route: 042
     Dates: start: 20250703
  20. TRAZIMERA [Suspect]
     Active Substance: TRASTUZUMAB-QYYP
     Dosage: 542.7 MG, EVERY 3 WEEKS
     Route: 042
     Dates: start: 20250703
  21. TRAZIMERA [Suspect]
     Active Substance: TRASTUZUMAB-QYYP
     Dosage: 540 MG, EVERY 3 WEEKS
     Route: 042
     Dates: start: 20250724
  22. TRAZIMERA [Suspect]
     Active Substance: TRASTUZUMAB-QYYP
     Dosage: 540 MG, EVERY 3 WEEKS
     Route: 042
     Dates: start: 20250724
  23. TRAZIMERA [Suspect]
     Active Substance: TRASTUZUMAB-QYYP
     Dosage: 525 MG, EVERY 3 WEEKS
     Route: 042
     Dates: start: 20250814
  24. TRAZIMERA [Suspect]
     Active Substance: TRASTUZUMAB-QYYP
     Dosage: 525 MG EVERY 3 WEEKS
     Route: 042
     Dates: start: 20250814
  25. TRAZIMERA [Suspect]
     Active Substance: TRASTUZUMAB-QYYP
     Dosage: 518.16 MG, EVERY 3 WEEKS
     Route: 042
     Dates: start: 20250911
  26. TRAZIMERA [Suspect]
     Active Substance: TRASTUZUMAB-QYYP
     Dosage: 518.16 MG, EVERY 3 WEEKS
     Route: 042
     Dates: start: 20250911
  27. TRAZIMERA [Suspect]
     Active Substance: TRASTUZUMAB-QYYP
     Dosage: 520.8 MG, EVERY 3 WEEKS
     Route: 042
     Dates: start: 20251002
  28. TRAZIMERA [Suspect]
     Active Substance: TRASTUZUMAB-QYYP
     Dosage: 522 MG, EVERY 3 WEEKS
     Route: 042
     Dates: start: 20251024
  29. TRAZIMERA [Suspect]
     Active Substance: TRASTUZUMAB-QYYP
     Dosage: 522 MG, EVERY 3 WEEKS
     Route: 042
     Dates: start: 20251024
  30. TRAZIMERA [Suspect]
     Active Substance: TRASTUZUMAB-QYYP
     Dosage: 522 MG, EVERY 3 WEEKS
     Route: 042
     Dates: start: 20251113
  31. TRAZIMERA [Suspect]
     Active Substance: TRASTUZUMAB-QYYP
     Dosage: 522 MG, EVERY 3 WEEKS
     Route: 042
     Dates: start: 20251113
  32. BUPROPION [Concomitant]
     Active Substance: BUPROPION
     Dosage: UNK
  33. CAPECITABINE [Concomitant]
     Active Substance: CAPECITABINE
     Indication: Triple negative breast cancer
     Dosage: UNK, Q3
  34. ESCITALOPRAM [Concomitant]
     Active Substance: ESCITALOPRAM OXALATE
     Indication: Anxiety
     Dosage: UNK
  35. ESCITALOPRAM [Concomitant]
     Active Substance: ESCITALOPRAM OXALATE
     Indication: Depression
  36. FAMOTIDINE [Concomitant]
     Active Substance: FAMOTIDINE
     Indication: Premedication
     Dosage: 20 MG
     Route: 048
     Dates: start: 20241127
  37. FAMOTIDINE [Concomitant]
     Active Substance: FAMOTIDINE
     Dosage: 20 MG
     Route: 048
     Dates: start: 20241128
  38. MONTELUKAST [Concomitant]
     Active Substance: MONTELUKAST
     Indication: Premedication
     Dosage: 10 MG
     Route: 048
     Dates: start: 20241127
  39. MONTELUKAST [Concomitant]
     Active Substance: MONTELUKAST
     Dosage: 10 MG
     Route: 048
     Dates: start: 20241128
  40. PEMBROLIZUMAB [Concomitant]
     Active Substance: PEMBROLIZUMAB
     Indication: Triple negative breast cancer
     Dosage: UNK, Q3
  41. RUPATADINE [Concomitant]
     Active Substance: RUPATADINE
     Indication: Premedication
     Dosage: 10 MG
     Route: 048
     Dates: start: 20241127
  42. SYNTHROID [Concomitant]
     Active Substance: LEVOTHYROXINE SODIUM
     Dosage: UNK
  43. SYNTHROID [Concomitant]
     Active Substance: LEVOTHYROXINE SODIUM
     Dosage: 0.175 MG, DAILY
  44. PANTOPRAZOLE [Concomitant]
     Active Substance: PANTOPRAZOLE
     Dosage: UNK
  45. METOCLOPRAMIDE [Concomitant]
     Active Substance: METOCLOPRAMIDE
     Dosage: UNK

REACTIONS (23)
  - Chest discomfort [Not Recovered/Not Resolved]
  - Back pain [Not Recovered/Not Resolved]
  - Musculoskeletal stiffness [Not Recovered/Not Resolved]
  - Pneumonia bacterial [Recovered/Resolved]
  - Haematemesis [Recovered/Resolved]
  - Pneumonia [Recovered/Resolved]
  - Haemoglobin decreased [Unknown]
  - Nausea [Recovered/Resolved]
  - Hyperhidrosis [Recovered/Resolved]
  - Dizziness [Recovered/Resolved]
  - Feeling cold [Unknown]
  - Blood pressure fluctuation [Unknown]
  - Blood pressure diastolic increased [Recovering/Resolving]
  - Blood pressure increased [Not Recovered/Not Resolved]
  - Fatigue [Not Recovered/Not Resolved]
  - Diarrhoea [Not Recovered/Not Resolved]
  - Palmar-plantar erythrodysaesthesia syndrome [Recovering/Resolving]
  - Bone pain [Unknown]
  - Lymphoedema [Unknown]
  - Axillary pain [Recovering/Resolving]
  - Dyspepsia [Recovered/Resolved]
  - Gastritis [Recovered/Resolved]
  - Off label use [Unknown]

NARRATIVE: CASE EVENT DATE: 20241108
